FAERS Safety Report 21795816 (Version 1)
Quarter: 2022Q4

REPORT INFORMATION
  Report Type: Spontaneous
  Country: CN (occurrence: CN)
  Receive Date: 20221229
  Receipt Date: 20221229
  Transmission Date: 20230113
  Serious: Yes (Life-Threatening, Hospitalization, Other)
  Sender: FDA-Public Use
  Company Number: CN-BEIGENE AUS PTY LTD-BGN-2022-012045

PATIENT
  Age: 35 Year
  Sex: Male
  Weight: 84 kg

DRUGS (8)
  1. AZACITIDINE [Suspect]
     Active Substance: AZACITIDINE
     Indication: Myelodysplastic syndrome
     Route: 042
     Dates: start: 20221215, end: 20221221
  2. BGB-11417 [Suspect]
     Active Substance: BGB-11417
     Indication: Myelodysplastic syndrome
     Dosage: TABLET, FILM COATED
     Route: 048
     Dates: start: 20221215
  3. BGB-11417 [Suspect]
     Active Substance: BGB-11417
     Route: 048
     Dates: start: 20221216
  4. BGB-11417 [Suspect]
     Active Substance: BGB-11417
     Dosage: TABLET, FILM COATED
     Route: 048
     Dates: start: 20221217
  5. BGB-11417 [Suspect]
     Active Substance: BGB-11417
     Dosage: TABLET, FILM COATED
     Route: 048
     Dates: start: 20221218, end: 20221224
  6. LEVOFLOXACIN [Concomitant]
     Active Substance: LEVOFLOXACIN
     Indication: Pneumonia
     Dates: start: 20221118, end: 20221126
  7. PIPERACILLIN SODIUM [Concomitant]
     Active Substance: PIPERACILLIN SODIUM
     Indication: Pneumonia
     Route: 042
     Dates: start: 20221118, end: 20221126
  8. VITAMIN C [Concomitant]
     Active Substance: ASCORBIC ACID
     Indication: Nutritional supplementation
     Route: 042
     Dates: start: 20221118, end: 20221126

REACTIONS (1)
  - Pneumonia [Not Recovered/Not Resolved]

NARRATIVE: CASE EVENT DATE: 20221224
